FAERS Safety Report 23540840 (Version 1)
Quarter: 2024Q1

REPORT INFORMATION
  Report Type: Spontaneous
  Country: FR (occurrence: FR)
  Receive Date: 20240219
  Receipt Date: 20240219
  Transmission Date: 20240410
  Serious: Yes (Hospitalization)
  Sender: FDA-Public Use
  Company Number: None

PATIENT
  Age: 70 Year
  Sex: Female

DRUGS (8)
  1. LEVOFLOXACIN [Suspect]
     Active Substance: LEVOFLOXACIN
     Indication: Lung disorder
     Dosage: 1 GRAM, QD (500 MG MORNING AND EVENING)
     Route: 048
     Dates: start: 20240111, end: 20240118
  2. COLCHICINE [Suspect]
     Active Substance: COLCHICINE
     Indication: Pericarditis
     Dosage: 0.5 MILLIGRAM, QD
     Route: 048
     Dates: start: 20240119, end: 20240130
  3. AUGMENTIN [Suspect]
     Active Substance: AMOXICILLIN\CLAVULANATE POTASSIUM
     Indication: Sepsis
     Dosage: 3 GRAM, QD (1 G 3 TIMES/DAY)
     Route: 048
     Dates: start: 20240110, end: 20240111
  4. ASPIRIN DL-LYSINE [Suspect]
     Active Substance: ASPIRIN DL-LYSINE
     Indication: Pericarditis
     Dosage: 2 GRAM, QD (1 G 3 TIMES/DAY THEN 1 G 2 TIMES/DAY)
     Route: 048
     Dates: start: 20240119, end: 20240130
  5. PLAQUENIL [Suspect]
     Active Substance: HYDROXYCHLOROQUINE SULFATE
     Indication: Systemic lupus erythematosus
     Dosage: 400 MILLIGRAM, QD (200 MG/DAY THEN 400 MG/DAY)
     Route: 048
     Dates: start: 20240125, end: 20240130
  6. ELIQUIS [Concomitant]
     Active Substance: APIXABAN
     Indication: Atrial fibrillation
     Dosage: 5 MILLIGRAM, BID (12 HOURS) (5 MG 2 TIMES/DAY)
     Route: 048
     Dates: start: 20240111
  7. BISOPROLOL [Concomitant]
     Active Substance: BISOPROLOL\BISOPROLOL FUMARATE
     Indication: Atrial fibrillation
     Dosage: 2.5 MILLIGRAM, QD
     Route: 048
     Dates: start: 20240110
  8. FUROSEMIDE [Concomitant]
     Active Substance: FUROSEMIDE
     Indication: Hypervolaemia
     Dosage: 20 MILLIGRAM, QD
     Route: 048
     Dates: start: 20240111

REACTIONS (2)
  - Cholestasis [Recovering/Resolving]
  - Hepatic cytolysis [Recovering/Resolving]

NARRATIVE: CASE EVENT DATE: 20240122
